FAERS Safety Report 7682212-7 (Version None)
Quarter: 2011Q3

REPORT INFORMATION
  Report Type: 
  Country: None (occurrence: None)
  Receive Date: 20110815
  Receipt Date: 20110812
  Transmission Date: 20111222
  Serious: No
  Sender: FDA-Public Use
  Company Number: US-PFIZER INC-2011186253

PATIENT
  Sex: Male

DRUGS (1)
  1. ZOLOFT [Suspect]
     Indication: DEPRESSION
     Dosage: 0.25 ML (DILUTED WITH 4 OUNCES OF WATER), 1X/DAY
     Route: 048
     Dates: start: 20110811

REACTIONS (1)
  - DRUG INTOLERANCE [None]
